FAERS Safety Report 5946904-X (Version None)
Quarter: 2008Q4

REPORT INFORMATION
  Report Type: 
  Country: None (occurrence: None)
  Receive Date: 20081107
  Receipt Date: 20081107
  Transmission Date: 20090506
  Serious: No
  Sender: FDA-Public Use
  Company Number: None

PATIENT
  Age: 74 Year
  Sex: Female
  Weight: 65.318 kg

DRUGS (1)
  1. VALTREX [Suspect]
     Indication: HERPES ZOSTER
     Dosage: ONE CAPLET TWICE DAILY PO
     Route: 048
     Dates: start: 20080904, end: 20080905

REACTIONS (3)
  - BLINDNESS UNILATERAL [None]
  - PHOTOPSIA [None]
  - VISUAL IMPAIRMENT [None]
